FAERS Safety Report 6179022-9 (Version None)
Quarter: 2009Q2

REPORT INFORMATION
  Report Type: 
  Country: None (occurrence: None)
  Receive Date: 20090505
  Receipt Date: 20090424
  Transmission Date: 20091009
  Serious: Yes (Hospitalization)
  Sender: FDA-Public Use
  Company Number: GB-JNJFOC-20090406085

PATIENT
  Age: 65 Year
  Sex: Female
  Weight: 77 kg

DRUGS (4)
  1. REMICADE [Suspect]
     Indication: PSORIATIC ARTHROPATHY
     Route: 042
  2. AZATHIOPRINE SODIUM [Concomitant]
  3. ATENOLOL [Concomitant]
  4. ESTRADERM [Concomitant]

REACTIONS (1)
  - CROHN'S DISEASE [None]
